FAERS Safety Report 7260916-8 (Version None)
Quarter: 2011Q1

REPORT INFORMATION
  Report Type: 
  Country: None (occurrence: None)
  Receive Date: 20110130
  Receipt Date: 20101227
  Transmission Date: 20110831
  Serious: No
  Sender: FDA-Public Use
  Company Number: US-ABBOTT-10P-163-0693781-00

PATIENT
  Age: 20 Year
  Sex: Female

DRUGS (4)
  1. RENTEX [Concomitant]
     Indication: CONTRACEPTION
  2. PAROXETINE HCL [Concomitant]
     Indication: DEPRESSION
  3. PROPRANOLOL [Concomitant]
     Indication: CARDIAC DISORDER
  4. HUMIRA [Suspect]
     Indication: PSORIASIS
     Dates: start: 20100601

REACTIONS (1)
  - INJECTION SITE PAIN [None]
